FAERS Safety Report 24644253 (Version 1)
Quarter: 2024Q4

REPORT INFORMATION
  Report Type: Report from Study
  Country: US (occurrence: US)
  Receive Date: 20241120
  Receipt Date: 20241120
  Transmission Date: 20250114
  Serious: Yes (Other)
  Sender: ABBVIE
  Company Number: US-ABBVIE-6007805

PATIENT
  Age: 18 Year
  Sex: Female

DRUGS (1)
  1. RINVOQ [Suspect]
     Active Substance: UPADACITINIB
     Indication: Product used for unknown indication
     Route: 048
     Dates: start: 20230301

REACTIONS (2)
  - Intestinal anastomosis [Unknown]
  - Stoma closure [Unknown]

NARRATIVE: CASE EVENT DATE: 20240601
